FAERS Safety Report 20665662 (Version 1)
Quarter: 2022Q2

REPORT INFORMATION
  Report Type: Spontaneous
  Country: CA (occurrence: CA)
  Receive Date: 20220402
  Receipt Date: 20220402
  Transmission Date: 20220721
  Serious: Yes (Death)
  Sender: FDA-Public Use
  Company Number: None

PATIENT
  Sex: Female

DRUGS (2)
  1. FLUOROURACIL [Suspect]
     Active Substance: FLUOROURACIL
     Indication: Product used for unknown indication
     Route: 042
  2. MITOMYCIN [Concomitant]
     Active Substance: MITOMYCIN
     Indication: Product used for unknown indication
     Dosage: POWDER FOR SOLUTION INTRAVESICULAR

REACTIONS (2)
  - Cardiac failure [Fatal]
  - Toxicity to various agents [Fatal]
